FAERS Safety Report 13256214 (Version 2)
Quarter: 2017Q2

REPORT INFORMATION
  Report Type: Spontaneous
  Country: US (occurrence: US)
  Receive Date: 20170221
  Receipt Date: 20170529
  Transmission Date: 20170830
  Serious: No
  Sender: FDA-Public Use
  Company Number: US-009507513-1702USA002321

PATIENT
  Age: 17 Year
  Sex: Female
  Weight: 83.45 kg

DRUGS (2)
  1. NEXPLANON [Suspect]
     Active Substance: ETONOGESTREL
     Indication: CONTRACEPTION
     Dosage: 1 ROD EVERY 3 YEARS
     Route: 059
     Dates: start: 20170103, end: 20170203
  2. NEXPLANON [Suspect]
     Active Substance: ETONOGESTREL
     Dosage: A NEW INSERTON, EVERY 3 YEARS
     Route: 059
     Dates: start: 20170223

REACTIONS (5)
  - Device expulsion [Recovered/Resolved]
  - Implant site swelling [Recovering/Resolving]
  - Instillation site erythema [Recovering/Resolving]
  - Implant site irritation [Recovering/Resolving]
  - Implant site infection [Recovered/Resolved]

NARRATIVE: CASE EVENT DATE: 20170109
